FAERS Safety Report 8583019-9 (Version None)
Quarter: 2012Q3

REPORT INFORMATION
  Report Type: 
  Country: None (occurrence: None)
  Receive Date: 20120809
  Receipt Date: 20120801
  Transmission Date: 20120928
  Serious: Yes (Other)
  Sender: FDA-Public Use
  Company Number: FR-ELI_LILLY_AND_COMPANY-FR201208000202

PATIENT
  Sex: Male

DRUGS (7)
  1. ALIMTA [Suspect]
     Dosage: UNK, UNKNOWN
     Route: 065
     Dates: start: 20111001
  2. ALIMTA [Suspect]
     Indication: PLEURAL MESOTHELIOMA
     Dosage: UNK, UNKNOWN
     Route: 065
     Dates: start: 20080101, end: 20090101
  3. GEMZAR [Suspect]
     Indication: PLEURAL MESOTHELIOMA
     Dosage: UNK UNK, OTHER
     Route: 065
     Dates: start: 20120403
  4. ALIMTA [Suspect]
     Dosage: UNK, UNKNOWN
     Route: 065
     Dates: start: 20101101, end: 20110301
  5. CARBOPLATIN [Concomitant]
     Dosage: UNK
     Dates: start: 20101101, end: 20110301
  6. CARBOPLATIN [Concomitant]
     Dosage: UNK
     Dates: start: 20111001
  7. CARBOPLATIN [Concomitant]
     Indication: PLEURAL MESOTHELIOMA
     Dosage: UNK
     Dates: start: 20080101, end: 20090101

REACTIONS (5)
  - PYREXIA [None]
  - NEOPLASM PROGRESSION [None]
  - RASH ERYTHEMATOUS [None]
  - ERYSIPELAS [None]
  - MEDICAL DEVICE COMPLICATION [None]
